FAERS Safety Report 7948365-8 (Version None)
Quarter: 2011Q4

REPORT INFORMATION
  Report Type: 
  Country: None (occurrence: None)
  Receive Date: 20111130
  Receipt Date: 20111121
  Transmission Date: 20120403
  Serious: Yes (Hospitalization, Other)
  Sender: FDA-Public Use
  Company Number: US-SHIRE-ALL1-2011-04634

PATIENT
  Sex: Female
  Weight: 112.2 kg

DRUGS (8)
  1. TRILEPTAL [Concomitant]
     Indication: BIPOLAR DISORDER
     Dosage: 150 MG, 1X/DAY:QD
     Route: 048
  2. XANAX [Concomitant]
     Indication: ANXIETY
     Dosage: 0.5 MG, OTHER (TID AS NEEDED)
     Route: 048
  3. NASONEX [Concomitant]
     Indication: ASTHMA
     Dosage: UNK, AS REQ'D
     Route: 045
  4. VYVANSE [Suspect]
     Indication: ATTENTION DEFICIT/HYPERACTIVITY DISORDER
     Dosage: 70 MG, 1X/DAY:QD
     Route: 048
     Dates: start: 20090101
  5. DIOVAN [Concomitant]
     Indication: HYPERTENSION
     Dosage: 160 MG, 2X/DAY:BID
     Route: 048
  6. ASPIRIN [Concomitant]
     Indication: PRODUCT USED FOR UNKNOWN INDICATION
     Dosage: 81 MG, 1X/DAY:QD
     Route: 048
  7. XANAX [Concomitant]
     Dosage: 1 MG, 1X/DAY:QD (AT NIGHT)
     Route: 048
  8. VESICARE [Concomitant]
     Indication: URINARY INCONTINENCE
     Dosage: UNK, AS REQ'D
     Route: 048

REACTIONS (6)
  - ARTHRALGIA [None]
  - PANCREATITIS RELAPSING [None]
  - IMPAIRED GASTRIC EMPTYING [None]
  - CONDITION AGGRAVATED [None]
  - ABNORMAL LOSS OF WEIGHT [None]
  - DRUG EFFECT DECREASED [None]
